FAERS Safety Report 6862585-5 (Version None)
Quarter: 2010Q3

REPORT INFORMATION
  Report Type: 
  Country: None (occurrence: None)
  Receive Date: 20100721
  Receipt Date: 20100707
  Transmission Date: 20110219
  Serious: Yes (Hospitalization)
  Sender: FDA-Public Use
  Company Number: CA-ELI_LILLY_AND_COMPANY-CA201007001793

PATIENT
  Sex: Male
  Weight: 65.397 kg

DRUGS (15)
  1. GEMCITABINE HCL [Suspect]
     Indication: PANCREATIC CARCINOMA
     Dosage: 1750 MG, WEEKLY (1/W)
     Route: 042
     Dates: start: 20091201
  2. OTHER PHARMA COMPANY INV DRUG [Suspect]
     Indication: PANCREATIC CARCINOMA
     Dosage: 668 MG, OTHER
     Dates: start: 20091201
  3. NOVORAPID [Concomitant]
     Dosage: UNK, 3/D
     Route: 058
     Dates: start: 20090520
  4. INSULIN GLARGINE [Concomitant]
     Dosage: UNK, EACH EVENING
     Route: 058
     Dates: start: 20090520
  5. PANCRELIPASE [Concomitant]
     Indication: DYSPEPSIA
     Dosage: 2 D/F, 2/D
     Route: 048
     Dates: start: 20090520
  6. CALCIUM CARBONATE [Concomitant]
     Indication: DYSPEPSIA
     Dosage: UNK, 3/D
     Route: 048
     Dates: start: 20090520
  7. LOPERAMIDE HYDROCHLORIDE [Concomitant]
     Indication: DIARRHOEA
     Dosage: 1 D/F, AS NEEDED
     Route: 048
     Dates: start: 20091216
  8. BISOPROLOL [Concomitant]
     Dosage: 2.5 MG, DAILY (1/D)
     Route: 048
     Dates: start: 20100109
  9. ACETYLSALISYLSYRE [Concomitant]
     Indication: ANTICOAGULANT THERAPY
     Dosage: 81 MG, DAILY (1/D)
     Route: 048
     Dates: start: 20100109
  10. BUCKLEY'S COUGH, COLD + FLU DAYTIME RELIEF [Concomitant]
     Indication: COUGH
     Dosage: UNK, AS NEEDED
     Route: 048
     Dates: start: 20100213
  11. ANUSOL /USA/ [Concomitant]
     Indication: HAEMORRHOIDS
     Dosage: UNK, AS NEEDED
     Route: 050
     Dates: start: 20100213
  12. METOCLOPRAMIDE HYDROCHLORIDE [Concomitant]
     Indication: ABDOMINAL DISTENSION
     Dosage: UNK, AS NEEDED
     Route: 048
     Dates: start: 20100419
  13. MAGNESIUM GLUCEPTATE [Concomitant]
     Indication: BLOOD MAGNESIUM DECREASED
     Dosage: UNK, 2/D
     Route: 048
     Dates: start: 20100419
  14. IBUPROFEN [Concomitant]
     Indication: PAIN
     Dosage: UNK, AS NEEDED
     Route: 048
     Dates: start: 20100416
  15. OMEPRAZOLE [Concomitant]
     Indication: DYSPEPSIA
     Dosage: 20 MG, DAILY (1/D)
     Route: 048
     Dates: start: 20100503

REACTIONS (2)
  - DEHYDRATION [None]
  - DIARRHOEA [None]
